FAERS Safety Report 5627844-2 (Version None)
Quarter: 2008Q1

REPORT INFORMATION
  Report Type: 
  Country: None (occurrence: None)
  Receive Date: 20080213
  Receipt Date: 20080213
  Transmission Date: 20080703
  Serious: No
  Sender: FDA-Public Use
  Company Number: None

PATIENT
  Age: 61 Year
  Sex: Female
  Weight: 52.6173 kg

DRUGS (2)
  1. ZESTRIL [Suspect]
     Indication: HYPERTENSION
     Dosage: 1 DAILY
     Dates: start: 19980101, end: 20000115
  2. LISINOPRIL [Suspect]
     Dosage: 1 DAILY
     Dates: start: 20040912, end: 20050124

REACTIONS (5)
  - ASTHMA [None]
  - HYPERHIDROSIS [None]
  - HYPERTENSION [None]
  - NAUSEA [None]
  - RENAL FAILURE [None]
